FAERS Safety Report 23968894 (Version 1)
Quarter: 2024Q2

REPORT INFORMATION
  Report Type: Spontaneous
  Country: FR (occurrence: FR)
  Receive Date: 20240612
  Receipt Date: 20240612
  Transmission Date: 20240716
  Serious: Yes (Hospitalization)
  Sender: FDA-Public Use
  Company Number: FR-ROCHE-3113685

PATIENT
  Age: 71 Year
  Sex: Male
  Weight: 92 kg

DRUGS (27)
  1. CYCLOPHOSPHAMIDE [Suspect]
     Active Substance: CYCLOPHOSPHAMIDE
     Indication: Diffuse large B-cell lymphoma
     Dosage: MOST RECENT DOSE: 23/MAY/2022, 1500MG
     Route: 042
     Dates: start: 20220322
  2. DOXORUBICIN [Suspect]
     Active Substance: DOXORUBICIN
     Indication: Diffuse large B-cell lymphoma
     Dosage: MOST RECENT DOSE: 23/MAY/2022, 100MG
     Route: 042
     Dates: start: 20220322
  3. METHYLPREDNISOLONE [Suspect]
     Active Substance: METHYLPREDNISOLONE
     Indication: Diffuse large B-cell lymphoma
     Dosage: 80.000MG QD
     Route: 042
     Dates: start: 20220321
  4. PREDNISOLONE [Suspect]
     Active Substance: PREDNISOLONE
     Indication: Diffuse large B-cell lymphoma
     Dosage: 100.000MG
     Route: 065
     Dates: start: 20220321
  5. PREDNISONE [Suspect]
     Active Substance: PREDNISONE
     Indication: Diffuse large B-cell lymphoma
     Dosage: 100.000MG
     Route: 065
     Dates: start: 20220322
  6. RITUXIMAB [Suspect]
     Active Substance: RITUXIMAB
     Indication: Diffuse large B-cell lymphoma
     Dosage: MOST RECENT DOSE: 23/MAY/2022 (375 MG)
     Route: 042
     Dates: start: 20220321
  7. ACETAMINOPHEN [Concomitant]
     Active Substance: ACETAMINOPHEN
     Indication: Premedication
     Dosage: 1000.000MG
     Route: 065
     Dates: start: 20220523, end: 20220613
  8. AMOXICILLIN TRIHYDRATE [Concomitant]
     Active Substance: AMOXICILLIN
     Dosage: 1.000G
     Route: 065
     Dates: start: 20220603
  9. AMOXICILLIN TRIHYDRATE [Concomitant]
     Active Substance: AMOXICILLIN
     Indication: Pneumonia
     Dosage: UNK
     Route: 065
     Dates: start: 20220610
  10. BACTRIM [Concomitant]
     Active Substance: SULFAMETHOXAZOLE\TRIMETHOPRIM
     Indication: Infection prophylaxis
     Dosage: 800.000MG
     Route: 065
     Dates: start: 20220322
  11. CANDESARTAN CILEXETIL [Concomitant]
     Active Substance: CANDESARTAN CILEXETIL
     Indication: Hypertension
     Dosage: 32.000MG QD
     Route: 065
  12. CANDESARTAN CILEXETIL [Concomitant]
     Active Substance: CANDESARTAN CILEXETIL
     Dosage: 32.000MG QD
     Route: 065
  13. DIPHENHYDRAMINE HYDROCHLORIDE [Concomitant]
     Active Substance: DIPHENHYDRAMINE HYDROCHLORIDE
     Indication: Premedication
     Dosage: 1000.000MG
     Route: 065
     Dates: start: 20220523, end: 20220613
  14. HYDROCHLOROTHIAZIDE [Concomitant]
     Active Substance: HYDROCHLOROTHIAZIDE
     Indication: Hypertension
     Dosage: 25.000MG QD
     Route: 065
  15. HYDROCHLOROTHIAZIDE [Concomitant]
     Active Substance: HYDROCHLOROTHIAZIDE
     Dosage: 25.000MG QD
     Route: 065
  16. PEGFILGRASTIM [Concomitant]
     Active Substance: PEGFILGRASTIM
     Indication: Product used for unknown indication
     Dosage: 6.000MG QD
     Route: 065
     Dates: start: 20220706
  17. PEGFILGRASTIM [Concomitant]
     Active Substance: PEGFILGRASTIM
     Dosage: 6.000MG QD
     Route: 065
     Dates: start: 20220504
  18. PEGFILGRASTIM [Concomitant]
     Active Substance: PEGFILGRASTIM
     Dosage: 6.000MG QD
     Route: 065
     Dates: start: 20220525
  19. PEGFILGRASTIM [Concomitant]
     Active Substance: PEGFILGRASTIM
     Dosage: 6.000MG QD
     Route: 065
     Dates: start: 20220615
  20. POLATUZUMAB VEDOTIN [Concomitant]
     Active Substance: POLATUZUMAB VEDOTIN
     Indication: Diffuse large B-cell lymphoma
     Dosage: MOST RECENT DOSE: 23/MAY/2022, 180MG
     Route: 065
     Dates: start: 20220321
  21. PRAVASTATIN SODIUM [Concomitant]
     Active Substance: PRAVASTATIN SODIUM
     Indication: Hypertension
     Dosage: 40.000MG QD
     Route: 065
  22. PRAVASTATIN SODIUM [Concomitant]
     Active Substance: PRAVASTATIN SODIUM
     Dosage: 40.000MG QD
     Route: 065
  23. RILMENIDINE PHOSPHATE [Concomitant]
     Active Substance: RILMENIDINE PHOSPHATE
     Indication: Hypertension
     Dosage: 1.000MG
     Route: 065
  24. RILMENIDINE PHOSPHATE [Concomitant]
     Active Substance: RILMENIDINE PHOSPHATE
     Dosage: 1.000MG
     Route: 065
  25. VENETOCLAX [Concomitant]
     Active Substance: VENETOCLAX
     Indication: Diffuse large B-cell lymphoma
     Dosage: 800 MG DAYS 4 TO 8 OF C1 AND DAYS 1 TO 5 OF C2 TO C6; MOST RECENT DOSE PRIOR TO AE:27/MAY/2022
     Route: 065
     Dates: start: 20220324
  26. VERAPAMIL [Concomitant]
     Active Substance: VERAPAMIL HYDROCHLORIDE
     Indication: Hypertension
     Dosage: 240 CAPSULE
     Route: 065
  27. VALACYCLOVIR HYDROCHLORIDE [Concomitant]
     Active Substance: VALACYCLOVIR HYDROCHLORIDE
     Indication: Infection prophylaxis
     Dosage: 500.000MG
     Route: 065
     Dates: start: 20220322

REACTIONS (1)
  - Pneumonia [Recovered/Resolved]

NARRATIVE: CASE EVENT DATE: 20220603
